FAERS Safety Report 4274551-7 (Version None)
Quarter: 2004Q1

REPORT INFORMATION
  Report Type: 
  Country: None (occurrence: None)
  Receive Date: 20040120
  Receipt Date: 20031114
  Transmission Date: 20041129
  Serious: Yes (Life-Threatening)
  Sender: FDA-Public Use
  Company Number: IT-ROCHE-356035

PATIENT
  Age: 59 Year
  Sex: Female

DRUGS (2)
  1. PEGASYS [Suspect]
     Indication: HEPATITIS
     Route: 058
     Dates: start: 20030101, end: 20031113
  2. REBETOL [Suspect]
     Indication: HEPATITIS
     Route: 048
     Dates: start: 20030101, end: 20031113

REACTIONS (3)
  - MOUTH ULCERATION [None]
  - RENAL FAILURE [None]
  - TRI-IODOTHYRONINE DECREASED [None]
